FAERS Safety Report 9137282 (Version 2)
Quarter: 2013Q1

REPORT INFORMATION
  Report Type: Report from Study
  Country: US (occurrence: US)
  Receive Date: 20130304
  Receipt Date: 20130313
  Transmission Date: 20140127
  Serious: Yes (Life-Threatening, Hospitalization, Other)
  Sender: FDA-Public Use
  Company Number: US-CELGENEUS-163-21880-13023953

PATIENT
  Age: 64 Year
  Sex: Male
  Weight: 84.19 kg

DRUGS (9)
  1. REVLIMID [Suspect]
     Indication: ACUTE MYELOID LEUKAEMIA
     Dosage: 50 MILLIGRAM
     Route: 048
     Dates: start: 20130131, end: 20130215
  2. LISINOPRIL [Concomitant]
     Indication: HYPERTENSION
     Dosage: 15 MILLIGRAM
     Route: 065
  3. PREDNISONE [Concomitant]
     Indication: AUTOIMMUNE HAEMOLYTIC ANAEMIA
     Dosage: 40 MILLIGRAM
     Route: 048
     Dates: start: 20130214
  4. ALBUTEROL [Concomitant]
     Indication: ASTHMA
     Route: 055
  5. FLONASE [Concomitant]
     Indication: ASTHMA
     Route: 065
  6. DUONEBS [Concomitant]
     Indication: PRODUCT USED FOR UNKNOWN INDICATION
     Route: 065
  7. VORICONAZOLE [Concomitant]
     Indication: PROPHYLAXIS
     Route: 065
     Dates: start: 2013
  8. ACYCLOVIR [Concomitant]
     Indication: PROPHYLAXIS
     Route: 065
     Dates: start: 2013
  9. CIPROFLOXACIN [Concomitant]
     Indication: PROPHYLAXIS
     Route: 065
     Dates: start: 2013

REACTIONS (3)
  - Hypotension [Unknown]
  - Clostridium difficile sepsis [Not Recovered/Not Resolved]
  - Renal failure acute [Not Recovered/Not Resolved]
